FAERS Safety Report 25594003 (Version 2)
Quarter: 2025Q3

REPORT INFORMATION
  Report Type: Spontaneous
  Country: GB (occurrence: GB)
  Receive Date: 20250723
  Receipt Date: 20250724
  Transmission Date: 20251020
  Serious: Yes (Hospitalization, Disabling, Other)
  Sender: BAXTER
  Company Number: None

PATIENT
  Age: 21 Year
  Sex: Female
  Weight: 44 kg

DRUGS (1)
  1. METRONIDAZOLE [Suspect]
     Active Substance: METRONIDAZOLE
     Indication: Oral infection
     Route: 065
     Dates: start: 20250624, end: 20250628

REACTIONS (6)
  - Mouth ulceration [Recovering/Resolving]
  - Mouth swelling [Recovering/Resolving]
  - Fatigue [Not Recovered/Not Resolved]
  - Weight decreased [Not Recovered/Not Resolved]
  - Dizziness [Not Recovered/Not Resolved]
  - Medication error [Unknown]

NARRATIVE: CASE EVENT DATE: 20250625
